FAERS Safety Report 7674663-1 (Version None)
Quarter: 2011Q3

REPORT INFORMATION
  Report Type: 
  Country: None (occurrence: None)
  Receive Date: 20110810
  Receipt Date: 20110802
  Transmission Date: 20111222
  Serious: No
  Sender: FDA-Public Use
  Company Number: BR-ROCHE-794528

PATIENT
  Sex: Female

DRUGS (2)
  1. ISOTRETINOIN [Suspect]
     Dosage: CAPSULE
     Route: 048
     Dates: start: 20101001, end: 20110801
  2. SELENE [Concomitant]
     Indication: CONTRACEPTION
     Route: 048
     Dates: end: 20110101

REACTIONS (2)
  - PREGNANCY [None]
  - NO ADVERSE EVENT [None]
